FAERS Safety Report 9230439 (Version 2)
Quarter: 2013Q2

REPORT INFORMATION
  Report Type: Spontaneous
  Country: US (occurrence: US)
  Receive Date: 20130415
  Receipt Date: 20130509
  Transmission Date: 20140414
  Serious: Yes (Other)
  Sender: FDA-Public Use
  Company Number: US-PFIZER INC-2013114780

PATIENT
  Age: 62 Year
  Sex: Female
  Weight: 49 kg

DRUGS (5)
  1. PREMARIN [Suspect]
     Indication: VAGINAL DYSPLASIA
     Dosage: 0.5 G, WEEKLY
     Route: 067
  2. PREMARIN [Suspect]
     Dosage: 1 G, 2X/WEEK
     Route: 067
  3. WELCHOL [Suspect]
     Indication: HYPERCHOLESTEROLAEMIA
     Dosage: 625 MG, 6X/DAY
  4. ZETIA [Suspect]
     Indication: HYPERCHOLESTEROLAEMIA
     Dosage: 10 MG, 1X/DAY
  5. RECLAST [Suspect]
     Indication: OSTEOPOROSIS
     Dosage: UNK, YEARLY

REACTIONS (2)
  - Osteoporosis [Unknown]
  - Hypercholesterolaemia [Unknown]
